FAERS Safety Report 21016215 (Version 8)
Quarter: 2022Q4

REPORT INFORMATION
  Report Type: Report from Study
  Country: BR (occurrence: BR)
  Receive Date: 20220628
  Receipt Date: 20221227
  Transmission Date: 20230113
  Serious: Yes (Other)
  Sender: FDA-Public Use
  Company Number: BR-NOVARTISPH-NVSC2022BR146037

PATIENT
  Sex: Female
  Weight: 60 kg

DRUGS (10)
  1. KISQALI [Suspect]
     Active Substance: RIBOCICLIB
     Indication: Product used for unknown indication
     Dosage: 3 DOSAGE FORM, QD
     Route: 065
     Dates: start: 202004
  2. KISQALI [Suspect]
     Active Substance: RIBOCICLIB
     Dosage: 2 DOSAGE FORM (FOR 7 DAYS)
     Route: 065
  3. KISQALI [Suspect]
     Active Substance: RIBOCICLIB
     Dosage: 1 DOSAGE FORM (FOR 14 DAYS)
     Route: 065
  4. KISQALI [Suspect]
     Active Substance: RIBOCICLIB
     Dosage: 2 DOSAGE FORM
     Route: 065
  5. KISQALI [Suspect]
     Active Substance: RIBOCICLIB
     Dosage: UNK
     Route: 065
  6. KISQALI [Suspect]
     Active Substance: RIBOCICLIB
     Dosage: UNK (2 TABLETS FOR 10 DAYS AND THEN TAKES 1 TABLET AND REST FOR 7 DAYS)
     Route: 065
  7. DIOVAN [Suspect]
     Active Substance: VALSARTAN
     Indication: Hypertension
     Dosage: 160 MG
     Route: 065
  8. CAPTOPRIL [Suspect]
     Active Substance: CAPTOPRIL
     Indication: Product used for unknown indication
     Dosage: UNK (50 OF CAPTOPRIL)
     Route: 065
  9. BEPANTOL [Concomitant]
     Indication: Product used for unknown indication
     Dosage: UNK
     Route: 065
  10. KETIN [Concomitant]
     Indication: Product used for unknown indication
     Dosage: UNK
     Route: 065

REACTIONS (48)
  - Breast cancer [Unknown]
  - Skin cancer [Unknown]
  - Cataract [Unknown]
  - Hypotension [Unknown]
  - Metastases to skin [Unknown]
  - Constipation [Recovering/Resolving]
  - Decreased immune responsiveness [Not Recovered/Not Resolved]
  - Palpitations [Unknown]
  - Thyroid disorder [Unknown]
  - COVID-19 [Unknown]
  - Memory impairment [Unknown]
  - Somnolence [Not Recovered/Not Resolved]
  - Pain in extremity [Unknown]
  - Psychomotor hyperactivity [Unknown]
  - Gastritis [Recovered/Resolved]
  - Nervousness [Unknown]
  - Malaise [Unknown]
  - Hernia [Unknown]
  - Nail disorder [Unknown]
  - Back pain [Unknown]
  - Dental caries [Unknown]
  - Gingival pain [Unknown]
  - Hyperaesthesia teeth [Unknown]
  - Osteoporosis [Unknown]
  - Alopecia [Unknown]
  - Pollakiuria [Unknown]
  - Salivary hypersecretion [Unknown]
  - Chromaturia [Unknown]
  - Erythema [Unknown]
  - Pain [Unknown]
  - Visual impairment [Unknown]
  - Hot flush [Recovered/Resolved]
  - Stress [Unknown]
  - Skin texture abnormal [Unknown]
  - Hypersensitivity [Unknown]
  - Arthralgia [Unknown]
  - Dry skin [Unknown]
  - Insomnia [Unknown]
  - Anaemia [Not Recovered/Not Resolved]
  - Pruritus [Unknown]
  - Blood pressure increased [Recovered/Resolved]
  - Cough [Unknown]
  - Nausea [Unknown]
  - Fatigue [Unknown]
  - Dry eye [Unknown]
  - Inappropriate schedule of product administration [Unknown]
  - Sluggishness [Not Recovered/Not Resolved]
  - Dyspepsia [Recovered/Resolved]

NARRATIVE: CASE EVENT DATE: 20200101
